FAERS Safety Report 8876032 (Version 1)
Quarter: 2012Q4

REPORT INFORMATION
  Report Type: Report from Study
  Country: US (occurrence: US)
  Receive Date: 20121030
  Receipt Date: 20121030
  Transmission Date: 20130627
  Serious: Yes (Death)
  Sender: FDA-Public Use
  Company Number: US-ROCHE-1090076

PATIENT
  Age: 75 None
  Sex: Female
  Weight: 56.75 kg

DRUGS (12)
  1. BEVACIZUMAB [Suspect]
     Indication: COLORECTAL CANCER
     Route: 042
     Dates: start: 200701, end: 201206
  2. 5-FLUOROURACIL [Suspect]
     Indication: COLORECTAL CANCER
     Route: 042
     Dates: start: 200701, end: 201206
  3. OXALIPLATIN [Suspect]
     Indication: COLORECTAL CANCER
     Route: 042
     Dates: start: 200701, end: 201206
  4. LEUCOVORIN [Concomitant]
     Indication: COLORECTAL CANCER
     Route: 042
  5. DECADRON [Concomitant]
     Route: 048
  6. ALOXI [Concomitant]
     Route: 042
  7. BENADRYL [Concomitant]
     Route: 042
  8. EMEND [Concomitant]
     Route: 048
  9. LISINOPRIL [Concomitant]
     Route: 048
  10. HYDROCHLOROTHIAZIDE [Concomitant]
     Route: 048
  11. FENTANYL [Concomitant]
     Route: 065
  12. ARANESP [Concomitant]
     Route: 065
     Dates: start: 20120717

REACTIONS (6)
  - Red blood cell count decreased [Not Recovered/Not Resolved]
  - Decreased appetite [Not Recovered/Not Resolved]
  - Ageusia [Not Recovered/Not Resolved]
  - Feeling cold [Recovered/Resolved]
  - Weight fluctuation [Recovered/Resolved]
  - Malignant neoplasm progression [Fatal]
